FAERS Safety Report 8213962-1 (Version None)
Quarter: 2012Q1

REPORT INFORMATION
  Report Type: 
  Country: None (occurrence: None)
  Receive Date: 20120316
  Receipt Date: 20120313
  Transmission Date: 20120608
  Serious: No
  Sender: FDA-Public Use
  Company Number: US-PFIZER INC-2012066505

PATIENT
  Sex: Female
  Weight: 68 kg

DRUGS (6)
  1. SOMAVERT [Suspect]
     Indication: INSULIN-LIKE GROWTH FACTOR INCREASED
  2. TAMOXIFEN CITRATE [Suspect]
     Indication: INSULIN-LIKE GROWTH FACTOR INCREASED
  3. DIOVAN HCT [Concomitant]
     Dosage: UNK
  4. METFORMIN [Concomitant]
     Dosage: UNK
  5. SOMAVERT [Suspect]
     Indication: PITUITARY TUMOUR
     Dosage: UNK, 1X/DAY
     Route: 058
     Dates: start: 20050101, end: 20090101
  6. TAMOXIFEN CITRATE [Suspect]
     Indication: PITUITARY TUMOUR
     Dosage: 20 MG, 1X/DAY
     Route: 048
     Dates: start: 20090101, end: 20090101

REACTIONS (4)
  - INSOMNIA [None]
  - GASTROINTESTINAL DISORDER [None]
  - WEIGHT INCREASED [None]
  - HOT FLUSH [None]
